FAERS Safety Report 10158143 (Version 2)
Quarter: 2014Q2

REPORT INFORMATION
  Report Type: Report from Study
  Country: HN (occurrence: HN)
  Receive Date: 20140507
  Receipt Date: 20140507
  Transmission Date: 20141212
  Serious: Yes (Life-Threatening, Other)
  Sender: FDA-Public Use
  Company Number: PHHY2014HN052747

PATIENT
  Age: 59 Year
  Sex: Female
  Weight: 42.7 kg

DRUGS (1)
  1. GLIVEC [Suspect]
     Indication: CHRONIC MYELOID LEUKAEMIA
     Dosage: 400 MG, QD
     Route: 048
     Dates: start: 200907

REACTIONS (4)
  - Feeling abnormal [Unknown]
  - Respiratory disorder [Unknown]
  - Bronchitis [Recovered/Resolved]
  - Influenza [Not Recovered/Not Resolved]
